FAERS Safety Report 10499012 (Version 1)
Quarter: 2014Q4

REPORT INFORMATION
  Report Type: Spontaneous
  Country: GB (occurrence: GB)
  Receive Date: 20141006
  Receipt Date: 20141006
  Transmission Date: 20150528
  Serious: Yes (Death, Hospitalization)
  Sender: FDA-Public Use
  Company Number: GB-ABBVIE-14P-167-1291509-00

PATIENT
  Age: 73 Year
  Sex: Female

DRUGS (2)
  1. VEMURAFENIB [Suspect]
     Active Substance: VEMURAFENIB
     Indication: METASTATIC MALIGNANT MELANOMA
     Route: 065
  2. SODIUM VALPROATE [Suspect]
     Active Substance: VALPROATE SODIUM
     Indication: SEIZURE

REACTIONS (13)
  - Toxic epidermal necrolysis [Recovering/Resolving]
  - Tachycardia [Recovering/Resolving]
  - Skin exfoliation [Recovering/Resolving]
  - Multi-organ failure [Fatal]
  - Stomatitis [Recovering/Resolving]
  - Hypotension [Recovering/Resolving]
  - Blister [Recovering/Resolving]
  - Rash erythematous [Recovering/Resolving]
  - Rash [Recovering/Resolving]
  - Vulvar erosion [Recovering/Resolving]
  - Pyrexia [Recovering/Resolving]
  - Conjunctival disorder [Recovering/Resolving]
  - Melaena [Unknown]
